FAERS Safety Report 8008572-5 (Version None)
Quarter: 2011Q4

REPORT INFORMATION
  Report Type: 
  Country: None (occurrence: None)
  Receive Date: 20111221
  Receipt Date: 20111213
  Transmission Date: 20120403
  Serious: Yes (Hospitalization)
  Sender: FDA-Public Use
  Company Number: CYCB20110004

PATIENT
  Age: 53 Year
  Sex: Male

DRUGS (2)
  1. HYDOCODONE/PARACETAMOL (PARACETAMOL, HYDROCODONE BITARTRATE) (PARACETA [Concomitant]
  2. CYCLOBENZAPRINE HYDROCHLORIDE [Suspect]
     Indication: BACK PAIN

REACTIONS (2)
  - NEUROLEPTIC MALIGNANT SYNDROME [None]
  - IDIOSYNCRATIC DRUG REACTION [None]
